FAERS Safety Report 20365379 (Version 1)
Quarter: 2022Q1

REPORT INFORMATION
  Report Type: Report from Study
  Country: US (occurrence: US)
  Receive Date: 20220122
  Receipt Date: 20220122
  Transmission Date: 20220424
  Serious: Yes (Other)
  Sender: FDA-Public Use
  Company Number: US-SHIRE-US202018718

PATIENT
  Sex: Female

DRUGS (1)
  1. HUMAN IMMUNOGLOBULIN G [Suspect]
     Active Substance: HUMAN IMMUNOGLOBULIN G
     Indication: Immunodeficiency common variable
     Dosage: 24 GRAM, EVERY 4 WK
     Route: 042

REACTIONS (4)
  - Cervical spinal stenosis [Unknown]
  - Diverticulitis [Unknown]
  - Headache [Unknown]
  - Inappropriate schedule of product administration [Unknown]
